FAERS Safety Report 4770411-3 (Version None)
Quarter: 2005Q3

REPORT INFORMATION
  Report Type: 
  Country: None (occurrence: None)
  Receive Date: 20050915
  Receipt Date: 20050526
  Transmission Date: 20060218
  Serious: No
  Sender: FDA-Public Use
  Company Number: US-GLAXOSMITHKLINE-A0560216A

PATIENT
  Age: 60 Year
  Sex: Female

DRUGS (1)
  1. ABREVA [Suspect]
     Dates: start: 20050520

REACTIONS (5)
  - BURNING SENSATION MUCOSAL [None]
  - HYPERSENSITIVITY [None]
  - LIP HAEMORRHAGE [None]
  - ORAL DISCOMFORT [None]
  - SCAB [None]
